FAERS Safety Report 9165532 (Version 1)
Quarter: 2013Q1

REPORT INFORMATION
  Report Type: Spontaneous
  Country: DE (occurrence: None)
  Receive Date: 20130212
  Receipt Date: 20130212
  Transmission Date: 20140127
  Serious: Yes (Death, Hospitalization)
  Sender: FDA-Public Use
  Company Number: 2013034662

PATIENT
  Age: 83 Year
  Sex: Female

DRUGS (6)
  1. PRIVIGEN (IMMUNE GLOBULIN INTRAVENOUS (HUMAN) 10% LIQUID) [Suspect]
     Indication: HYPOGAMMAGLOBULINAEMIA
     Route: 042
     Dates: start: 20120710
  2. DIGITOXIN [Concomitant]
  3. METOPROLOL SUCCINATE [Concomitant]
  4. KINZAL (TELMISARTAN) [Concomitant]
  5. SIMVASTATIN [Concomitant]
  6. ASS (ACETYLSALICYLIC ACID) [Concomitant]

REACTIONS (5)
  - Pneumonia aspiration [None]
  - Cachexia [None]
  - Dehydration [None]
  - Cardio-respiratory distress [None]
  - General physical health deterioration [None]
